FAERS Safety Report 5483804-6 (Version None)
Quarter: 2007Q4

REPORT INFORMATION
  Report Type: 
  Country: None (occurrence: None)
  Receive Date: 20071012
  Receipt Date: 20071001
  Transmission Date: 20080405
  Serious: Yes (Hospitalization)
  Sender: FDA-Public Use
  Company Number: B0490126A

PATIENT
  Age: 86 Year
  Sex: Female

DRUGS (11)
  1. PAROXETINE [Suspect]
     Indication: DRUG USE FOR UNKNOWN INDICATION
     Dosage: 10MG PER DAY
     Route: 048
     Dates: end: 20070904
  2. ARAVA [Suspect]
     Dosage: 20MG PER DAY
     Route: 048
     Dates: end: 20070904
  3. OMEPRAZOLE [Suspect]
     Route: 048
     Dates: end: 20070904
  4. PARACETAMOL [Suspect]
     Route: 048
     Dates: end: 20070904
  5. LYRICA [Suspect]
     Route: 048
     Dates: end: 20070907
  6. CORTANCYL [Concomitant]
  7. LEXOMIL [Concomitant]
  8. ACUPAN [Concomitant]
  9. CACIT VITAMINE D3 [Concomitant]
  10. LUMIGAN [Concomitant]
     Route: 047
  11. CHOLESTYRAMINE [Concomitant]

REACTIONS (5)
  - CONDITION AGGRAVATED [None]
  - GAMMA-GLUTAMYLTRANSFERASE INCREASED [None]
  - HEPATITIS [None]
  - HYPOALBUMINAEMIA [None]
  - MIXED HEPATOCELLULAR-CHOLESTATIC INJURY [None]
